FAERS Safety Report 4508665-0 (Version None)
Quarter: 2004Q4

REPORT INFORMATION
  Report Type: 
  Country: None (occurrence: None)
  Receive Date: 20041123
  Receipt Date: 20040521
  Transmission Date: 20050328
  Serious: Yes (Other)
  Sender: FDA-Public Use
  Company Number: US-GLAXOSMITHKLINE-A0511776A

PATIENT
  Age: 63 Year
  Sex: Female

DRUGS (1)
  1. WELLBUTRIN [Suspect]
     Indication: BACK PAIN
     Dosage: 200MG PER DAY
     Route: 048
     Dates: start: 20010101

REACTIONS (4)
  - DIZZINESS [None]
  - MUSCLE CRAMP [None]
  - MYALGIA [None]
  - PALPITATIONS [None]
